FAERS Safety Report 10908393 (Version 1)
Quarter: 2015Q1

REPORT INFORMATION
  Report Type: Spontaneous
  Country: IT (occurrence: IT)
  Receive Date: 20150312
  Receipt Date: 20150312
  Transmission Date: 20150721
  Serious: Yes (Hospitalization)
  Sender: FDA-Public Use
  Company Number: IT-PFIZER INC-2015090143

PATIENT
  Age: 25 Year
  Sex: Female

DRUGS (1)
  1. CEFODOX [Suspect]
     Active Substance: CEFPODOXIME PROXETIL
     Indication: ACUTE TONSILLITIS
     Dosage: 2 DF, 1X/DAY
     Dates: start: 20130805, end: 20130805

REACTIONS (1)
  - Angioedema [Recovered/Resolved]

NARRATIVE: CASE EVENT DATE: 20130805
